FAERS Safety Report 8936629 (Version 1)
Quarter: 2012Q4

REPORT INFORMATION
  Report Type: 
  Country: JP (occurrence: JP)
  Receive Date: 20121130
  Receipt Date: 20121130
  Transmission Date: 20130627
  Serious: Yes (Life-Threatening, Other)
  Sender: FDA-Public Use
  Company Number: JP-PFIZER INC-2012300589

PATIENT
  Age: 95 Year
  Sex: Male

DRUGS (9)
  1. ZOSYN [Suspect]
     Indication: PNEUMONIA
     Dosage: 4.5 g, 3x/day
     Route: 041
     Dates: start: 20121024, end: 20121029
  2. BAYASPIRIN [Concomitant]
     Indication: CAROTID ARTERIOSCLEROSIS
     Dosage: 100 mg, 1x/day
     Route: 048
     Dates: start: 20121024
  3. MAGMITT [Concomitant]
     Indication: CONSTIPATION
     Dosage: 660 mg, 1x/day
     Route: 048
     Dates: start: 20121024
  4. TAKEPRON [Concomitant]
     Indication: REFLUX OESOPHAGITIS
     Dosage: 15 mg, 1x/day
     Route: 048
     Dates: start: 20121024
  5. DORNER [Concomitant]
     Indication: LUMBAR SPINAL STENOSIS
     Dosage: 60 ug, 1x/day
     Route: 048
     Dates: start: 20121024
  6. SELBEX [Concomitant]
     Indication: REFLUX OESOPHAGITIS
     Dosage: 1.5 g, 1x/day
     Route: 048
     Dates: start: 20121024
  7. LASIX [Concomitant]
     Indication: PLEURAL EFFUSION
     Dosage: 80 mg, 1x/day
     Route: 048
     Dates: start: 20121024
  8. TALION [Concomitant]
     Indication: ECZEMA NUMMULAR
     Dosage: 20 mg, 1x/day
     Route: 048
     Dates: start: 20121024
  9. AMINO ACIDS/CARBOHYDRATES/MINERALS/VITAMINS, [Concomitant]
     Dosage: 1000 ml, 1x/day
     Route: 041
     Dates: start: 20121024

REACTIONS (1)
  - Atrioventricular block complete [Recovered/Resolved]
